FAERS Safety Report 23271196 (Version 2)
Quarter: 2023Q4

REPORT INFORMATION
  Report Type: Spontaneous
  Country: US (occurrence: US)
  Receive Date: 20231207
  Receipt Date: 20231228
  Transmission Date: 20240109
  Serious: No
  Sender: FDA-Public Use
  Company Number: US-GSKCCFUS-Case-01869604_AE-104402

PATIENT
  Sex: Female

DRUGS (1)
  1. FLOVENT [Suspect]
     Active Substance: FLUTICASONE PROPIONATE
     Indication: Product used for unknown indication
     Dosage: UNK,44MCG INH 134A DC 120D US/T

REACTIONS (3)
  - Wrong technique in device usage process [Recovered/Resolved]
  - Product use issue [Not Recovered/Not Resolved]
  - Product complaint [Unknown]
